FAERS Safety Report 21561455 (Version 1)
Quarter: 2022Q4

REPORT INFORMATION
  Report Type: Spontaneous
  Country: PL (occurrence: PL)
  Receive Date: 20221107
  Receipt Date: 20221107
  Transmission Date: 20230113
  Serious: Yes (Other)
  Sender: FDA-Public Use
  Company Number: PL-002147023-NVSC2022PL242609

PATIENT

DRUGS (1)
  1. RUXOLITINIB [Suspect]
     Active Substance: RUXOLITINIB
     Indication: Myelofibrosis
     Dosage: 10 MG, BID (2X10MG)
     Route: 065
     Dates: start: 202202

REACTIONS (3)
  - Myelofibrosis [Unknown]
  - Malignant neoplasm progression [Unknown]
  - Splenomegaly [Unknown]
